FAERS Safety Report 9165817 (Version 7)
Quarter: 2013Q4

REPORT INFORMATION
  Report Type: Report from Study
  Country: PL (occurrence: PL)
  Receive Date: 20130315
  Receipt Date: 20131024
  Transmission Date: 20140711
  Serious: Yes (Hospitalization, Other)
  Sender: FDA-Public Use
  Company Number: PL-ROCHE-1202498

PATIENT
  Age: 47 Year
  Sex: Male

DRUGS (3)
  1. VEMURAFENIB [Suspect]
     Indication: MALIGNANT MELANOMA
     Route: 048
     Dates: start: 20121215
  2. PANTOPRAZOLE [Concomitant]
     Route: 065
     Dates: start: 20130314, end: 20130315
  3. AUGMENTIN [Concomitant]
     Route: 065
     Dates: start: 20130214, end: 20130215

REACTIONS (1)
  - Anaemia [Recovered/Resolved]
